FAERS Safety Report 10517743 (Version 2)
Quarter: 2014Q4

REPORT INFORMATION
  Report Type: Report from Study
  Country: US (occurrence: US)
  Receive Date: 20141014
  Receipt Date: 20141107
  Transmission Date: 20150528
  Serious: No
  Sender: FDA-Public Use
  Company Number: US-AMGEN INC.-USASL2014078169

PATIENT
  Age: 57 Year
  Sex: Male

DRUGS (2)
  1. ENBREL [Suspect]
     Active Substance: ETANERCEPT
     Indication: RHEUMATOID ARTHRITIS
     Dosage: 40 OR 50 MG, QWK
     Route: 065
     Dates: start: 2003
  2. HUMIRA [Suspect]
     Active Substance: ADALIMUMAB
     Indication: LIMB DISCOMFORT
     Dosage: UNK
     Route: 065
     Dates: start: 20131228

REACTIONS (5)
  - Headache [Recovered/Resolved]
  - Limb discomfort [Not Recovered/Not Resolved]
  - Paranasal sinus discomfort [Recovered/Resolved]
  - Musculoskeletal discomfort [Not Recovered/Not Resolved]
  - Sinusitis [Recovered/Resolved]

NARRATIVE: CASE EVENT DATE: 20140108
